FAERS Safety Report 18586298 (Version 1)
Quarter: 2020Q4

REPORT INFORMATION
  Report Type: Spontaneous
  Country: FR (occurrence: FR)
  Receive Date: 20201207
  Receipt Date: 20201207
  Transmission Date: 20210114
  Serious: Yes (Other)
  Sender: FDA-Public Use
  Company Number: FR-PFIZER INC-2020475849

PATIENT
  Age: 71 Year
  Sex: Male
  Weight: 78 kg

DRUGS (5)
  1. COAPROVEL [Concomitant]
     Active Substance: HYDROCHLOROTHIAZIDE\IRBESARTAN
     Dosage: UNK
  2. TIGECYCLINE. [Suspect]
     Active Substance: TIGECYCLINE
     Indication: OSTEITIS
     Dosage: 50 MG, 2X/DAY
     Route: 042
     Dates: start: 20200929
  3. LEVOFLOXACINE [LEVOFLOXACIN] [Suspect]
     Active Substance: LEVOFLOXACIN
     Indication: OSTEITIS
     Dosage: 750 MG, 1X/DAY
     Route: 048
     Dates: start: 20200929
  4. RIFAMPICINE [Suspect]
     Active Substance: RIFAMPIN
     Indication: OSTEITIS
     Dosage: 600 MG, 2X/DAY
     Route: 048
     Dates: start: 20200929
  5. FOSFOMYCINE [Suspect]
     Active Substance: FOSFOMYCIN
     Indication: OSTEITIS
     Dosage: 12 G, 1X/DAY
     Route: 042
     Dates: start: 20200917

REACTIONS (2)
  - Dysgeusia [Not Recovered/Not Resolved]
  - Off label use [Unknown]

NARRATIVE: CASE EVENT DATE: 20200929
